FAERS Safety Report 20584933 (Version 5)
Quarter: 2024Q4

REPORT INFORMATION
  Report Type: Report from Study
  Country: US (occurrence: US)
  Receive Date: 20220311
  Receipt Date: 20241016
  Transmission Date: 20250115
  Serious: No
  Sender: NOVARTIS
  Company Number: US-NOVARTISTESTPH-NVSC2022US057368

PATIENT
  Sex: Female

DRUGS (1)
  1. COSENTYX [Suspect]
     Active Substance: SECUKINUMAB
     Indication: Psoriasis
     Dosage: UNK
     Route: 050
     Dates: start: 20220301

REACTIONS (5)
  - Device leakage [Unknown]
  - Underdose [Unknown]
  - Drug ineffective [Unknown]
  - Psoriasis [Unknown]
  - Wrong technique in device usage process [Unknown]
